FAERS Safety Report 10748708 (Version 1)
Quarter: 2015Q1

REPORT INFORMATION
  Report Type: Spontaneous
  Country: US (occurrence: None)
  Receive Date: 20150128
  Receipt Date: 20150128
  Transmission Date: 20150721
  Serious: Yes (Other)
  Sender: FDA-Public Use
  Company Number: None

PATIENT
  Age: 65 Year
  Sex: Male
  Weight: 85.3 kg

DRUGS (2)
  1. CARBOPLATIN. [Suspect]
     Active Substance: CARBOPLATIN
     Indication: NON-SMALL CELL LUNG CANCER STAGE IV
     Dosage: 660 MG, OTHER
     Route: 042
     Dates: start: 20150122, end: 20150122
  2. PACLITAXEL. [Suspect]
     Active Substance: PACLITAXEL
     Indication: NON-SMALL CELL LUNG CANCER STAGE IV
     Dosage: 390 MG, OTHER
     Route: 042
     Dates: start: 20150122, end: 20150122

REACTIONS (5)
  - Vomiting [None]
  - Pain [None]
  - Muscle spasms [None]
  - Myalgia [None]
  - Paraesthesia [None]

NARRATIVE: CASE EVENT DATE: 20150122
